FAERS Safety Report 14686262 (Version 1)
Quarter: 2018Q1

REPORT INFORMATION
  Report Type: Spontaneous
  Country: US (occurrence: US)
  Receive Date: 20180326
  Receipt Date: 20180326
  Transmission Date: 20180509
  Serious: No
  Sender: FDA-Public Use
  Company Number: None

PATIENT
  Age: 6 Year
  Sex: Female
  Weight: 16.2 kg

DRUGS (5)
  1. PEG 3350 [Suspect]
     Active Substance: POLYETHYLENE GLYCOL 3350
     Indication: CONSTIPATION
     Dosage: QUANTITY:527 GRAMS;?
     Route: 048
     Dates: start: 20170531, end: 20170630
  2. ONDANSTATRON [Concomitant]
  3. MULTIVITAMIN [Concomitant]
     Active Substance: VITAMINS
  4. TRAMADOL. [Concomitant]
     Active Substance: TRAMADOL
  5. VITAMIN D SUPPLEMENTS [Concomitant]

REACTIONS (2)
  - Obsessive thoughts [None]
  - Abnormal behaviour [None]

NARRATIVE: CASE EVENT DATE: 20170531
